APPROVED DRUG PRODUCT: CARDENE SR
Active Ingredient: NICARDIPINE HYDROCHLORIDE
Strength: 45MG **Federal Register determination that product was not discontinued or withdrawn for safety or effectiveness reasons**
Dosage Form/Route: CAPSULE, EXTENDED RELEASE;ORAL
Application: N020005 | Product #002
Applicant: CHIESI USA INC
Approved: Feb 21, 1992 | RLD: Yes | RS: No | Type: DISCN